FAERS Safety Report 7712520-2 (Version None)
Quarter: 2011Q3

REPORT INFORMATION
  Report Type: 
  Country: None (occurrence: None)
  Receive Date: 20110826
  Receipt Date: 20110824
  Transmission Date: 20111222
  Serious: Yes (Hospitalization)
  Sender: FDA-Public Use
  Company Number: IT-PFIZER INC-2011134989

PATIENT
  Age: 68 Year
  Sex: Female

DRUGS (1)
  1. SUTENT [Suspect]
     Dosage: UNK
     Route: 048

REACTIONS (1)
  - POLYNEUROPATHY [None]
